FAERS Safety Report 5634795-6 (Version None)
Quarter: 2008Q1

REPORT INFORMATION
  Report Type: 
  Country: None (occurrence: None)
  Receive Date: 20080222
  Receipt Date: 20080214
  Transmission Date: 20080703
  Serious: Yes (Other)
  Sender: FDA-Public Use
  Company Number: NL-PURDUE-USA_2008_0031315

PATIENT
  Age: 54 Year
  Sex: Male

DRUGS (2)
  1. CHLORHEXIDINE GLUCONATE [Suspect]
     Indication: INFECTION PROPHYLAXIS
     Route: 061
  2. LIDOCAINE [Concomitant]

REACTIONS (1)
  - ANAPHYLACTIC REACTION [None]
